FAERS Safety Report 16067049 (Version 1)
Quarter: 2019Q2

REPORT INFORMATION
  Report Type: Spontaneous
  Country: US (occurrence: US)
  Receive Date: 20190313
  Receipt Date: 20190313
  Transmission Date: 20190711
  Serious: Yes (Hospitalization)
  Sender: FDA-Public Use
  Company Number: None

PATIENT
  Age: 81 Year
  Sex: Male

DRUGS (2)
  1. SAMSCA [Concomitant]
     Active Substance: TOLVAPTAN
     Dates: start: 20190310
  2. CAPECITABINE. [Suspect]
     Active Substance: CAPECITABINE
     Indication: BREAST CANCER MALE
     Route: 048
     Dates: start: 20180213

REACTIONS (2)
  - Hyponatraemia [None]
  - Asthenia [None]

NARRATIVE: CASE EVENT DATE: 20190308
